FAERS Safety Report 22660620 (Version 1)
Quarter: 2023Q2

REPORT INFORMATION
  Report Type: Report from Study
  Country: CA (occurrence: CA)
  Receive Date: 20230630
  Receipt Date: 20230630
  Transmission Date: 20230721
  Serious: Yes (Other)
  Sender: FDA-Public Use
  Company Number: CA-GLAXOSMITHKLINE-CA2023060747

PATIENT

DRUGS (2)
  1. MEPOLIZUMAB [Suspect]
     Active Substance: MEPOLIZUMAB
     Indication: Asthma
     Dosage: 100 MG, Q4W
     Route: 058
     Dates: start: 20210827
  2. PREDNISONE [Concomitant]
     Active Substance: PREDNISONE
     Indication: Product used for unknown indication
     Dosage: 30 MG

REACTIONS (9)
  - Pulmonary congestion [Unknown]
  - Asthma [Unknown]
  - Dyspnoea [Unknown]
  - Adverse food reaction [Unknown]
  - Viral infection [Unknown]
  - Illness [Unknown]
  - Sinus congestion [Unknown]
  - Cough [Unknown]
  - Drug ineffective [Unknown]
